FAERS Safety Report 20753555 (Version 2)
Quarter: 2023Q2

REPORT INFORMATION
  Report Type: Spontaneous
  Country: US (occurrence: None)
  Receive Date: 20220426
  Receipt Date: 20230420
  Transmission Date: 20230721
  Serious: No
  Sender: FDA-Public Use
  Company Number: US-ROCHE-2833570

PATIENT
  Sex: Female

DRUGS (1)
  1. ESBRIET [Suspect]
     Active Substance: PIRFENIDONE
     Indication: Idiopathic pulmonary fibrosis
     Dosage: THREE TIMES DAILY
     Route: 048
     Dates: start: 20200811

REACTIONS (8)
  - Sputum increased [Unknown]
  - Sputum increased [Unknown]
  - Mobility decreased [Unknown]
  - Pulmonary function test decreased [Unknown]
  - Anxiety [Unknown]
  - Cough [Unknown]
  - COVID-19 [Unknown]
  - Therapy change [Unknown]
